FAERS Safety Report 18905543 (Version 2)
Quarter: 2021Q1

REPORT INFORMATION
  Report Type: Spontaneous
  Country: US (occurrence: US)
  Receive Date: 20210217
  Receipt Date: 20210326
  Transmission Date: 20210420
  Serious: Yes (Other)
  Sender: FDA-Public Use
  Company Number: US-PFIZER INC-2021141814

PATIENT
  Age: 75 Year

DRUGS (2)
  1. PREMARIN [Suspect]
     Active Substance: ESTROGENS, CONJUGATED
     Indication: HORMONE REPLACEMENT THERAPY
     Dosage: UNK (1.25 ONE DAY AND THE NEXT DAY I TAKE HALF OF THAT WHICH IS 0.625)
  2. XALATAN [Suspect]
     Active Substance: LATANOPROST
     Indication: GLAUCOMA
     Dosage: UNK

REACTIONS (4)
  - Hypersensitivity [Unknown]
  - Drug dependence [Unknown]
  - Hypertension [Unknown]
  - Memory impairment [Unknown]
